FAERS Safety Report 17124036 (Version 1)
Quarter: 2019Q4

REPORT INFORMATION
  Report Type: Spontaneous
  Country: US (occurrence: US)
  Receive Date: 20191206
  Receipt Date: 20191206
  Transmission Date: 20200122
  Serious: No
  Sender: FDA-Public Use
  Company Number: US-ROCHE-2384615

PATIENT
  Age: 58 Year
  Sex: Female
  Weight: 84.44 kg

DRUGS (24)
  1. OCREVUS [Suspect]
     Active Substance: OCRELIZUMAB
     Dosage: SECOND HALF INFUSION, THEN 600 MG EVERY 6 MONTHS. NEXT INFUSION: 19/OCT/2019
     Route: 042
     Dates: start: 20190503
  2. SUMATRIPTAN SUCCINATE. [Concomitant]
     Active Substance: SUMATRIPTAN SUCCINATE
     Indication: HEADACHE
     Dosage: WITH ONSET OF HEADACHE
     Route: 048
  3. HYDROCHLOROTHIAZIDE. [Concomitant]
     Active Substance: HYDROCHLOROTHIAZIDE
     Route: 048
  4. COENZYME Q10 [Concomitant]
     Active Substance: UBIDECARENONE
     Dosage: 1 TABLET
     Route: 048
  5. TRULICITY [Concomitant]
     Active Substance: DULAGLUTIDE
     Dosage: TRULICITY 1.5MG/0.5 ML SUBCUTANEOUS SOLUTION PEN-INJECTOR
     Route: 058
  6. CALCIUM ANTACID [Concomitant]
     Active Substance: CALCIUM CARBONATE
     Route: 048
  7. NITROFURANTOIN MACROCRYSTALS [Concomitant]
     Active Substance: NITROFURANTOIN
     Route: 048
  8. CINNAMON [CINNAMOMUM CASSIA] [Concomitant]
     Route: 048
  9. SAVELLA [Concomitant]
     Active Substance: MILNACIPRAN HYDROCHLORIDE
     Route: 048
  10. OCREVUS [Suspect]
     Active Substance: OCRELIZUMAB
     Indication: RELAPSING-REMITTING MULTIPLE SCLEROSIS
     Dosage: FIRST HALF INFUSION
     Route: 042
     Dates: start: 20190419
  11. AUBAGIO [Concomitant]
     Active Substance: TERIFLUNOMIDE
     Route: 048
  12. FOLIC ACID. [Concomitant]
     Active Substance: FOLIC ACID
     Route: 048
  13. FISH OIL [Concomitant]
     Active Substance: FISH OIL
     Route: 048
  14. ALBUTEROL SULFATE. [Concomitant]
     Active Substance: ALBUTEROL SULFATE
     Indication: WHEEZING
     Dosage: 2 PUFFS EVERY 4- 6 HOURS AS NEEDED FOR WHEEZING
     Route: 050
  15. ALLEGRA ALLERGY [Concomitant]
     Active Substance: FEXOFENADINE HYDROCHLORIDE
     Route: 048
  16. DILTIAZEM HCL [Concomitant]
     Active Substance: DILTIAZEM HYDROCHLORIDE
     Route: 048
  17. ONDANSETRON HCL [Concomitant]
     Active Substance: ONDANSETRON HYDROCHLORIDE
     Route: 048
  18. ATORVASTATIN CALCIUM. [Concomitant]
     Active Substance: ATORVASTATIN CALCIUM
     Route: 048
  19. LIDOCAINE. [Concomitant]
     Active Substance: LIDOCAINE
     Route: 050
  20. LOSARTAN POTASSIUM. [Concomitant]
     Active Substance: LOSARTAN POTASSIUM
     Route: 048
  21. GABAPENTIN. [Concomitant]
     Active Substance: GABAPENTIN
     Dosage: TAKE 3 TABS IN THE AM, 2 TABS IN THE AFTERNOON AND 3 TABS IN THE PM.
     Route: 048
  22. METFORMIN HCL [Concomitant]
     Active Substance: METFORMIN HYDROCHLORIDE
     Route: 048
  23. MELATONIN [Concomitant]
     Active Substance: MELATONIN
     Route: 048
  24. PANTOPRAZOLE SODIUM. [Concomitant]
     Active Substance: PANTOPRAZOLE SODIUM
     Route: 048

REACTIONS (2)
  - Fatigue [Recovered/Resolved]
  - Cough [Not Recovered/Not Resolved]

NARRATIVE: CASE EVENT DATE: 20190504
